FAERS Safety Report 17888979 (Version 3)
Quarter: 2020Q2

REPORT INFORMATION
  Report Type: Spontaneous
  Country: US (occurrence: US)
  Receive Date: 20200612
  Receipt Date: 20200630
  Transmission Date: 20200714
  Serious: No
  Sender: FDA-Public Use
  Company Number: US-SA-2020SA147429

PATIENT

DRUGS (2)
  1. LANTUS SOLOSTAR [Suspect]
     Active Substance: INSULIN GLARGINE
     Indication: TYPE 2 DIABETES MELLITUS
     Dosage: 15 IU, QD (ONCE AT NIGHT)
     Route: 065
  2. HUMALOG [Concomitant]
     Active Substance: INSULIN LISPRO
     Dosage: 15 IU, QD
     Route: 065

REACTIONS (4)
  - Blood glucose increased [Unknown]
  - Device operational issue [Unknown]
  - Wrong product administered [Unknown]
  - Product storage error [Unknown]
